FAERS Safety Report 11906579 (Version 1)
Quarter: 2016Q1

REPORT INFORMATION
  Report Type: Spontaneous
  Country: US (occurrence: None)
  Receive Date: 20160108
  Receipt Date: 20160108
  Transmission Date: 20160526
  Serious: Yes (Disabling)
  Sender: FDA-Public Use
  Company Number: None

PATIENT
  Age: 56 Year
  Sex: Male
  Weight: 77.11 kg

DRUGS (8)
  1. METHADONE [Concomitant]
     Active Substance: METHADONE HYDROCHLORIDE
  2. PREDINZONE [Concomitant]
  3. GINKGO BILOBA [Concomitant]
     Active Substance: GINKGO
  4. MULTI VITAMINS [Concomitant]
  5. ZOLOFT [Concomitant]
     Active Substance: SERTRALINE HYDROCHLORIDE
  6. ANTI-INFLAMMATORIES [Concomitant]
     Active Substance: UNSPECIFIED INGREDIENT
  7. WELLBUTRIN [Concomitant]
     Active Substance: BUPROPION HYDROCHLORIDE
  8. KEFLEX [Suspect]
     Active Substance: CEPHALEXIN
     Indication: TOOTH INFECTION
     Dosage: 10 OVER 8 DAYS
     Route: 048
     Dates: start: 20160101, end: 20160106

REACTIONS (6)
  - Self-medication [None]
  - Genital ulceration [None]
  - Urticaria [None]
  - Incorrect drug administration duration [None]
  - Stomatitis [None]
  - Ulcer [None]

NARRATIVE: CASE EVENT DATE: 20160106
